FAERS Safety Report 15979739 (Version 1)
Quarter: 2019Q1

REPORT INFORMATION
  Report Type: Report from Study
  Country: US (occurrence: US)
  Receive Date: 20190219
  Receipt Date: 20190219
  Transmission Date: 20190418
  Serious: Yes (Other)
  Sender: FDA-Public Use
  Company Number: US-ROCHE-2139238

PATIENT
  Sex: Male

DRUGS (2)
  1. VALCYTE [Suspect]
     Active Substance: VALGANCICLOVIR HYDROCHLORIDE
     Indication: LUNG TRANSPLANT
     Route: 048
  2. VALCYTE [Suspect]
     Active Substance: VALGANCICLOVIR HYDROCHLORIDE
     Indication: COMPLICATIONS OF TRANSPLANTED LUNG
     Dosage: 1 TABLET EVERY OTHER DAY
     Route: 048

REACTIONS (3)
  - Off label use [Unknown]
  - Cytomegalovirus test positive [Unknown]
  - Intentional product use issue [Unknown]
